FAERS Safety Report 8268837-9 (Version None)
Quarter: 2012Q2

REPORT INFORMATION
  Report Type: 
  Country: None (occurrence: None)
  Receive Date: 20120409
  Receipt Date: 20120409
  Transmission Date: 20120825
  Serious: No
  Sender: FDA-Public Use
  Company Number: None

PATIENT
  Sex: Male
  Weight: 71.214 kg

DRUGS (2)
  1. MOTRIN [Concomitant]
     Route: 048
  2. CIPROFLOXACIN HCL [Suspect]
     Indication: URETHRITIS
     Dosage: 500 MG
     Route: 048
     Dates: start: 20120106, end: 20120109

REACTIONS (6)
  - TENDON PAIN [None]
  - ANXIETY [None]
  - COGNITIVE DISORDER [None]
  - TENDONITIS [None]
  - TENDON RUPTURE [None]
  - PANIC REACTION [None]
